FAERS Safety Report 17609418 (Version 1)
Quarter: 2020Q2

REPORT INFORMATION
  Report Type: Report from Study
  Country: CA (occurrence: CA)
  Receive Date: 20200401
  Receipt Date: 20200401
  Transmission Date: 20200713
  Serious: Yes (Other)
  Sender: FDA-Public Use
  Company Number: PHHY2019CA094012

PATIENT
  Age: 72 Year
  Sex: Male

DRUGS (4)
  1. LEFLUNOMIDE. [Concomitant]
     Active Substance: LEFLUNOMIDE
     Indication: PRODUCT USED FOR UNKNOWN INDICATION
     Dosage: 20 MG, QD
     Route: 065
     Dates: start: 2010
  2. COSENTYX [Suspect]
     Active Substance: SECUKINUMAB
     Indication: PSORIATIC ARTHROPATHY
     Dosage: 450 MG, QMO
     Route: 058
     Dates: start: 20190327
  3. COSENTYX [Suspect]
     Active Substance: SECUKINUMAB
     Dosage: 300 MG, QMO
     Route: 058
  4. SILDENAFIL SANDOZ [Concomitant]
     Indication: PRODUCT USED FOR UNKNOWN INDICATION
     Dosage: UNK MG, UNK
     Route: 065

REACTIONS (16)
  - Fatigue [Unknown]
  - Influenza [Unknown]
  - Decreased immune responsiveness [Unknown]
  - Pneumonia [Unknown]
  - Arthralgia [Not Recovered/Not Resolved]
  - Arthritis [Unknown]
  - Joint swelling [Unknown]
  - Cough [Unknown]
  - Gastroenteritis viral [Unknown]
  - Musculoskeletal stiffness [Unknown]
  - Product prescribing error [Unknown]
  - Pain [Unknown]
  - Drug ineffective [Unknown]
  - Pyrexia [Unknown]
  - Peripheral swelling [Unknown]
  - Bronchitis [Unknown]

NARRATIVE: CASE EVENT DATE: 20200102
